FAERS Safety Report 16014184 (Version 2)
Quarter: 2019Q1

REPORT INFORMATION
  Report Type: Spontaneous
  Country: ES (occurrence: ES)
  Receive Date: 20190227
  Receipt Date: 20190312
  Transmission Date: 20190418
  Serious: Yes (Hospitalization, Other)
  Sender: FDA-Public Use
  Company Number: ES-GILEAD-2019-0391304

PATIENT
  Sex: Female

DRUGS (8)
  1. SINTROM [Concomitant]
     Active Substance: ACENOCOUMAROL
     Indication: RHEUMATIC HEART DISEASE
  2. EPCLUSA [Suspect]
     Active Substance: SOFOSBUVIR\VELPATASVIR
     Indication: CHRONIC HEPATITIS C
     Dosage: UNK
     Route: 065
     Dates: start: 20181219
  3. ADIRO [Concomitant]
     Active Substance: ASPIRIN
     Dosage: 300 MG
  4. OMEPRAZOLE. [Concomitant]
     Active Substance: OMEPRAZOLE
  5. ATORVASTATIN [Concomitant]
     Active Substance: ATORVASTATIN
     Dosage: 40 MG, QD
  6. SERETIDE [Concomitant]
     Active Substance: FLUTICASONE PROPIONATE\SALMETEROL XINAFOATE
  7. LORAZEPAM. [Concomitant]
     Active Substance: LORAZEPAM
  8. TERBASMIN [TERBUTALINE] [Concomitant]

REACTIONS (6)
  - Abdominal pain lower [Unknown]
  - Contraindicated product administered [Unknown]
  - Hepatitis C [Unknown]
  - Urinary tract discomfort [Unknown]
  - Nausea [Unknown]
  - Hypersensitivity vasculitis [Unknown]

NARRATIVE: CASE EVENT DATE: 201902
